FAERS Safety Report 5861457-2 (Version None)
Quarter: 2008Q3

REPORT INFORMATION
  Report Type: 
  Country: None (occurrence: None)
  Receive Date: 20080827
  Receipt Date: 20080515
  Transmission Date: 20090109
  Serious: No
  Sender: FDA-Public Use
  Company Number: US-ABBOTT-08P-163-0451883-00

PATIENT
  Sex: Male

DRUGS (3)
  1. COATED PDS [Suspect]
     Indication: BLOOD TRIGLYCERIDES INCREASED
     Route: 048
     Dates: start: 20080505
  2. BLOOD PRESSURE MEDICATION [Concomitant]
     Indication: HYPERTENSION
     Route: 048
  3. DIABETES MEDICATION [Concomitant]
     Indication: DIABETES MELLITUS

REACTIONS (4)
  - ARTHRALGIA [None]
  - GOUT [None]
  - JOINT SWELLING [None]
  - PAIN [None]
